FAERS Safety Report 10375389 (Version 1)
Quarter: 2014Q1

REPORT INFORMATION
  Report Type: Spontaneous
  Country: US (occurrence: None)
  Receive Date: 20140306
  Receipt Date: 20140306
  Transmission Date: 20141002
  Serious: Yes (Other)
  Sender: FDA-Public Use
  Company Number: 163-21880-13010698

PATIENT
  Age: 58 Year
  Sex: Female

DRUGS (13)
  1. REVLIMID (LENALIDOMIDE) (25 MILLIGRAM, CAPSULES) [Suspect]
     Indication: PLASMA CELL MYELOMA
     Dosage: 25 MG, 21 IN 21 D, PO
     Route: 048
     Dates: start: 20121212, end: 20130104
  2. METFORMIN (METFORMIN) [Concomitant]
  3. AMLODIPINE (AMLODIPINE) [Concomitant]
  4. SIMVASTIN (SIMVASTATIN) [Concomitant]
  5. PHENOBARBITAL (PHENOBARBITAL) [Concomitant]
  6. ATENOLOL (ATENOLOL) [Concomitant]
  7. LEVOTHYROXINE (LEVOTHYROXINE) [Concomitant]
  8. ASPIRIN (ACETYLSALICYLIC ACID) [Concomitant]
  9. LASIX (FUROSEMIDE) [Concomitant]
  10. KLOR-CON (POTASSIUM CHLORIDE) [Concomitant]
  11. AMBIEN (ZOLPIDEM TARTRATE) [Concomitant]
  12. HCTZ (HYDROCHLOROTHIAZIDE) [Concomitant]
  13. DEXAMETHASONE (DEXAMETHASONE) [Concomitant]

REACTIONS (1)
  - Dermatitis allergic [None]
